FAERS Safety Report 22050363 (Version 1)
Quarter: 2023Q1

REPORT INFORMATION
  Report Type: Spontaneous
  Country: US (occurrence: None)
  Receive Date: 20230301
  Receipt Date: 20230301
  Transmission Date: 20230417
  Serious: Yes (Other)
  Sender: FDA-Public Use
  Company Number: 2023A044396

PATIENT
  Age: 20392 Day
  Sex: Female
  Weight: 96.6 kg

DRUGS (14)
  1. NEXIUM [Suspect]
     Active Substance: ESOMEPRAZOLE MAGNESIUM
     Route: 048
  2. FAMOTIDINE [Concomitant]
     Active Substance: FAMOTIDINE
  3. DICLOFENAC [Concomitant]
     Active Substance: DICLOFENAC
  4. NAPROXEN [Concomitant]
     Active Substance: NAPROXEN
  5. TAMOXIFEN [Concomitant]
     Active Substance: TAMOXIFEN
  6. OXYCODONE [Concomitant]
     Active Substance: OXYCODONE
  7. DOCUSATE [Concomitant]
     Active Substance: DOCUSATE
  8. CALCIUM CARBONATE [Concomitant]
     Active Substance: CALCIUM CARBONATE
  9. TYLENOL [Concomitant]
     Active Substance: ACETAMINOPHEN
  10. XANAX [Concomitant]
     Active Substance: ALPRAZOLAM
  11. FLONASE [Concomitant]
     Active Substance: FLUTICASONE PROPIONATE
  12. ZOFRAN [Concomitant]
     Active Substance: ONDANSETRON HYDROCHLORIDE
  13. TOPRAZOLE [Concomitant]
  14. SUCRALFATE [Concomitant]
     Active Substance: SUCRALFATE

REACTIONS (1)
  - Gastric cancer [Unknown]

NARRATIVE: CASE EVENT DATE: 20160726
